FAERS Safety Report 23797445 (Version 1)
Quarter: 2024Q2

REPORT INFORMATION
  Report Type: Report from Study
  Country: GB (occurrence: GB)
  Receive Date: 20240430
  Receipt Date: 20240430
  Transmission Date: 20240716
  Serious: Yes (Hospitalization)
  Sender: FDA-Public Use
  Company Number: GB-SANDOZ-SDZ2023GB070849

PATIENT
  Sex: Female

DRUGS (1)
  1. ERELZI [Suspect]
     Active Substance: ETANERCEPT-SZZS
     Indication: Rheumatoid arthritis
     Dosage: 50 MG/ML; ERELZI 50MG/1ML PEN PK4
     Route: 058
     Dates: start: 202304

REACTIONS (3)
  - Adverse event [Unknown]
  - Product availability issue [Unknown]
  - Exposure during pregnancy [Unknown]
